FAERS Safety Report 26069159 (Version 1)
Quarter: 2025Q4

REPORT INFORMATION
  Report Type: Spontaneous
  Country: US (occurrence: US)
  Receive Date: 20251120
  Receipt Date: 20251120
  Transmission Date: 20260117
  Serious: No
  Sender: GLAND PHARMA LTD
  Company Number: US-GLANDPHARMA-US-2025GLNSPO02023

PATIENT

DRUGS (2)
  1. DOCETAXEL [Suspect]
     Active Substance: DOCETAXEL
     Indication: Chemotherapy
     Dosage: DOSES
     Route: 065
     Dates: start: 2025
  2. HERCEPTIN [Suspect]
     Active Substance: TRASTUZUMAB
     Indication: Chemotherapy
     Route: 065
     Dates: start: 2025

REACTIONS (2)
  - Axillary web syndrome [Unknown]
  - Lack of application site rotation [Unknown]

NARRATIVE: CASE EVENT DATE: 20250101
